FAERS Safety Report 21313016 (Version 1)
Quarter: 2022Q3

REPORT INFORMATION
  Report Type: Other
  Country: CN (occurrence: None)
  Receive Date: 20220909
  Receipt Date: 20220909
  Transmission Date: 20221026
  Serious: Yes (Other)
  Sender: FDA-Public Use
  Company Number: CN-ROCHE-3175510

PATIENT
  Age: 55 Year
  Sex: Male

DRUGS (6)
  1. CAPECITABINE [Suspect]
     Active Substance: CAPECITABINE
     Indication: Testis cancer
     Route: 048
     Dates: start: 20210714
  2. PACLITAXEL [Suspect]
     Active Substance: PACLITAXEL
     Indication: Testis cancer
     Route: 065
  3. NEDAPLATIN [Suspect]
     Active Substance: NEDAPLATIN
     Indication: Testis cancer
     Route: 065
  4. ETOPOSIDE [Suspect]
     Active Substance: ETOPOSIDE
     Indication: Testis cancer
     Route: 065
  5. CISPLATIN [Suspect]
     Active Substance: CISPLATIN
     Indication: Testis cancer
     Route: 065
  6. CYCLOPHOSPHAMIDE [Suspect]
     Active Substance: CYCLOPHOSPHAMIDE
     Indication: Testis cancer
     Route: 065

REACTIONS (2)
  - Disease progression [Unknown]
  - Drug ineffective [Unknown]
